FAERS Safety Report 10038411 (Version 1)
Quarter: 2014Q1

REPORT INFORMATION
  Report Type: Spontaneous
  Country: US (occurrence: None)
  Receive Date: 20140306
  Receipt Date: 20140306
  Transmission Date: 20141002
  Serious: Yes (Other)
  Sender: FDA-Public Use
  Company Number: 163-21880-13064340

PATIENT
  Age: 57 Year
  Sex: Female
  Weight: 49.9 kg

DRUGS (2)
  1. REVLIMID (LENALIDOMIDE) (25 MILLIGRAM, CAPSULES) [Suspect]
     Indication: PLASMA CELL MYELOMA
     Dosage: 25 MG, 1 IN 1 D, PO FEB / 2009 - UNKNOWN THERAPY DATES
     Route: 048
     Dates: start: 200902
  2. ASA (ACETYLSALICYLIC ACID) 81 MG, 1 IN 1 D, PO [Concomitant]

REACTIONS (1)
  - Neutropenia [None]
